FAERS Safety Report 7000737-4 (Version None)
Quarter: 2010Q3

REPORT INFORMATION
  Report Type: 
  Country: None (occurrence: None)
  Receive Date: 20100920
  Receipt Date: 20100113
  Transmission Date: 20110219
  Serious: No
  Sender: FDA-Public Use
  Company Number: US-ASTRAZENECA-2010SE01516

PATIENT
  Age: 20262 Day
  Sex: Female
  Weight: 63.5 kg

DRUGS (2)
  1. SEROQUEL [Suspect]
     Indication: BIPOLAR DISORDER
     Route: 048
     Dates: start: 20080601, end: 20100108
  2. PAXIL [Concomitant]
     Indication: DEPRESSION

REACTIONS (3)
  - DRUG DOSE OMISSION [None]
  - HEADACHE [None]
  - PRURITUS [None]
